FAERS Safety Report 6805157-0 (Version None)
Quarter: 2010Q2

REPORT INFORMATION
  Report Type: 
  Country: None (occurrence: None)
  Receive Date: 20100628
  Receipt Date: 20100628
  Transmission Date: 20101027
  Serious: No
  Sender: FDA-Public Use
  Company Number: None

PATIENT
  Age: 39 Year
  Sex: Female
  Weight: 56.6996 kg

DRUGS (1)
  1. ASPERCREME HEAT PAIN RELIEVING G EL, 2.5 OZ, CHATTEM [Suspect]
     Dosage: N/A
     Dates: start: 20100625, end: 20100625

REACTIONS (4)
  - APPLICATION SITE ERYTHEMA [None]
  - BURNING SENSATION [None]
  - EXPIRED DRUG ADMINISTERED [None]
  - FEELING HOT [None]
